FAERS Safety Report 12507403 (Version 2)
Quarter: 2016Q3

REPORT INFORMATION
  Report Type: Spontaneous
  Country: JP (occurrence: JP)
  Receive Date: 20160629
  Receipt Date: 20160829
  Transmission Date: 20161109
  Serious: Yes (Hospitalization, Other)
  Sender: FDA-Public Use
  Company Number: JP-BRISTOL-MYERS SQUIBB COMPANY-BMS-2016-052647

PATIENT
  Age: 52 Year
  Sex: Male

DRUGS (3)
  1. NIVOLUMAB [Suspect]
     Active Substance: NIVOLUMAB
     Dosage: UNK
     Route: 041
     Dates: start: 20160320, end: 20160320
  2. NIVOLUMAB [Suspect]
     Active Substance: NIVOLUMAB
     Indication: RENAL CELL CARCINOMA
     Dosage: UNK
     Route: 041
     Dates: start: 201511
  3. NIVOLUMAB [Suspect]
     Active Substance: NIVOLUMAB
     Dosage: UNK
     Route: 041
     Dates: start: 20160115, end: 20160115

REACTIONS (9)
  - Diarrhoea [Unknown]
  - Dyspnoea [Unknown]
  - Pleural effusion [Unknown]
  - Product use issue [Unknown]
  - Anaemia [Unknown]
  - Pyrexia [Unknown]
  - Cholangitis [Recovering/Resolving]
  - Phlebitis [Unknown]
  - Melaena [Unknown]

NARRATIVE: CASE EVENT DATE: 201511
